FAERS Safety Report 10126087 (Version 2)
Quarter: 2014Q2

REPORT INFORMATION
  Report Type: Spontaneous
  Country: CA (occurrence: CA)
  Receive Date: 20140427
  Receipt Date: 20140429
  Transmission Date: 20141212
  Serious: Yes (Other)
  Sender: FDA-Public Use
  Company Number: CA-PFIZER INC-2014112548

PATIENT
  Age: 67 Year
  Sex: Male

DRUGS (1)
  1. DILANTIN [Suspect]
     Dosage: 100 MG, UNK
     Dates: start: 2008

REACTIONS (2)
  - Convulsion [Unknown]
  - Anticonvulsant drug level decreased [Unknown]
